FAERS Safety Report 18838853 (Version 1)
Quarter: 2021Q1

REPORT INFORMATION
  Report Type: Spontaneous
  Country: US (occurrence: US)
  Receive Date: 20210203
  Receipt Date: 20210203
  Transmission Date: 20210419
  Serious: No
  Sender: FDA-Public Use
  Company Number: US-PFIZER INC-2021079399

PATIENT
  Age: 62 Year
  Sex: Female

DRUGS (1)
  1. XELJANZ XR [Suspect]
     Active Substance: TOFACITINIB CITRATE
     Indication: MUSCULOSKELETAL STIFFNESS
     Dosage: 11 MG, 1X/DAY

REACTIONS (3)
  - Infection [Unknown]
  - White blood cell count decreased [Unknown]
  - Off label use [Unknown]
